FAERS Safety Report 8367160-1 (Version None)
Quarter: 2012Q1

REPORT INFORMATION
  Report Type: 
  Country: None (occurrence: None)
  Receive Date: 20120323
  Receipt Date: 20110817
  Transmission Date: 20120608
  Serious: Yes (Other)
  Sender: FDA-Public Use
  Company Number: 163-21880-11072556

PATIENT
  Age: 58 Year
  Sex: Male

DRUGS (3)
  1. REVLIMID [Suspect]
     Indication: MULTIPLE MYELOMA
     Dosage: 15 MG, 1 IN 1 D, PO, 10 MG, 1 IN 1 D, PO, 10 MG, QD DAYS , 1-21 PO,
     Route: 048
     Dates: start: 20100701
  2. REVLIMID [Suspect]
     Indication: MULTIPLE MYELOMA
     Dosage: 15 MG, 1 IN 1 D, PO, 10 MG, 1 IN 1 D, PO, 10 MG, QD DAYS , 1-21 PO,
     Route: 048
     Dates: start: 20110301
  3. REVLIMID [Suspect]
     Indication: MULTIPLE MYELOMA
     Dosage: 15 MG, 1 IN 1 D, PO, 10 MG, 1 IN 1 D, PO, 10 MG, QD DAYS , 1-21 PO,
     Route: 048
     Dates: start: 20100801

REACTIONS (1)
  - CANCER PAIN [None]
